FAERS Safety Report 4615125-5 (Version None)
Quarter: 2005Q1

REPORT INFORMATION
  Report Type: 
  Country: None (occurrence: None)
  Receive Date: 20050322
  Receipt Date: 20050309
  Transmission Date: 20050727
  Serious: Yes (Other)
  Sender: FDA-Public Use
  Company Number: US-GLAXOSMITHKLINE-A0549022A

PATIENT
  Age: 50 Year
  Sex: Male

DRUGS (9)
  1. ADVAIR DISKUS 100/50 [Suspect]
     Dosage: 1PUFF TWICE PER DAY
     Route: 055
     Dates: start: 20040101
  2. SPIRIVA [Concomitant]
  3. LITHIUM CARBONATE CAP [Concomitant]
  4. BENZTROPINE [Concomitant]
  5. LORAZEPAM [Concomitant]
  6. HUMIBID [Concomitant]
  7. SEROQUEL [Concomitant]
  8. VERAPAMIL [Concomitant]
  9. ALBUTEROL SULFATE NEBULIZER [Concomitant]

REACTIONS (5)
  - ADRENAL SUPPRESSION [None]
  - DRUG INEFFECTIVE [None]
  - FATIGUE [None]
  - PNEUMONIA MYCOPLASMAL [None]
  - WEIGHT DECREASED [None]
